FAERS Safety Report 7412252-4 (Version None)
Quarter: 2011Q2

REPORT INFORMATION
  Report Type: 
  Country: None (occurrence: None)
  Receive Date: 20110413
  Receipt Date: 20110407
  Transmission Date: 20111010
  Serious: Yes (Hospitalization)
  Sender: FDA-Public Use
  Company Number: IT-PFIZER INC-2011077616

PATIENT
  Age: 61 Year
  Sex: Female

DRUGS (5)
  1. LANSOX [Concomitant]
     Route: 065
  2. SIVASTIN [Concomitant]
     Route: 065
  3. PRISMA [Concomitant]
     Route: 065
  4. LOBIVON [Concomitant]
     Route: 065
  5. CELEBREX [Suspect]
     Indication: NEURALGIA
     Dosage: 200 MG, DAILY
     Route: 048
     Dates: start: 20110324, end: 20110329

REACTIONS (2)
  - DIZZINESS [None]
  - ASTHENIA [None]
